FAERS Safety Report 6895914-7 (Version None)
Quarter: 2010Q3

REPORT INFORMATION
  Report Type: 
  Country: None (occurrence: None)
  Receive Date: 20100802
  Receipt Date: 20100723
  Transmission Date: 20110219
  Serious: Yes (Other)
  Sender: FDA-Public Use
  Company Number: HQWYE193816JUL04

PATIENT
  Sex: Female

DRUGS (2)
  1. PREMARIN [Suspect]
     Indication: HORMONE REPLACEMENT THERAPY
  2. PROVERA [Suspect]

REACTIONS (3)
  - MICROANGIOPATHY [None]
  - PERIPHERAL EMBOLISM [None]
  - PERIPHERAL ISCHAEMIA [None]
